FAERS Safety Report 8906206 (Version 1)
Quarter: 2012Q4

REPORT INFORMATION
  Report Type: Spontaneous
  Country: US (occurrence: None)
  Receive Date: 20121112
  Receipt Date: 20121112
  Transmission Date: 20130627
  Serious: Yes (Hospitalization)
  Sender: FDA-Public Use
  Company Number: None

PATIENT
  Age: 58 Year
  Sex: Female
  Weight: 50.8 kg

DRUGS (1)
  1. DYSPORT [Suspect]
     Indication: WRINKLES
     Dates: start: 20121008, end: 20121008

REACTIONS (9)
  - Headache [None]
  - Asthenia [None]
  - Nausea [None]
  - Dizziness [None]
  - Gait disturbance [None]
  - Balance disorder [None]
  - Back pain [None]
  - Hypoaesthesia [None]
  - Fatigue [None]
